FAERS Safety Report 8492682-2 (Version None)
Quarter: 2012Q3

REPORT INFORMATION
  Report Type: 
  Country: None (occurrence: None)
  Receive Date: 20120706
  Receipt Date: 20120625
  Transmission Date: 20120928
  Serious: Yes (Hospitalization)
  Sender: FDA-Public Use
  Company Number: DE-PFIZER INC-2012161457

PATIENT
  Age: 62 Year
  Sex: Male
  Weight: 92 kg

DRUGS (2)
  1. CISPLATIN [Suspect]
     Indication: NON-SMALL CELL LUNG CANCER
     Dosage: 50 MG/M2, UNK
     Dates: start: 20120418
  2. PACLITAXEL [Suspect]
     Indication: NON-SMALL CELL LUNG CANCER
     Dosage: 175 MG/M2, UNK
     Dates: start: 20120418

REACTIONS (1)
  - PULMONARY EMBOLISM [None]
